FAERS Safety Report 7559987-0 (Version None)
Quarter: 2011Q2

REPORT INFORMATION
  Report Type: 
  Country: None (occurrence: None)
  Receive Date: 20110621
  Receipt Date: 20110609
  Transmission Date: 20111010
  Serious: Yes (Other)
  Sender: FDA-Public Use
  Company Number: PHHY2011US44401

PATIENT
  Sex: Female

DRUGS (4)
  1. GILENYA [Suspect]
     Indication: MULTIPLE SCLEROSIS
     Dosage: 0.5 MG, QD
     Route: 048
     Dates: start: 20110406
  2. CONTRACEPTIVES NOS [Concomitant]
     Dosage: UNK
     Route: 048
  3. CALCIUM CARBONATE [Concomitant]
     Indication: GASTROOESOPHAGEAL REFLUX DISEASE
     Dosage: UNK
     Route: 048
  4. ZONEGRAN [Concomitant]
     Indication: NEURALGIA
     Dosage: UNK
     Route: 048

REACTIONS (4)
  - EYE PAIN [None]
  - EYE SWELLING [None]
  - PHOTOPHOBIA [None]
  - VISION BLURRED [None]
